FAERS Safety Report 25417273 (Version 4)
Quarter: 2025Q3

REPORT INFORMATION
  Report Type: Spontaneous
  Country: JP (occurrence: JP)
  Receive Date: 20250610
  Receipt Date: 20250716
  Transmission Date: 20251021
  Serious: Yes (Other)
  Sender: MERCK SHARP & DOHME LLC
  Company Number: JP-009507513-2294081

PATIENT
  Age: 7 Decade
  Sex: Female

DRUGS (3)
  1. KEYTRUDA [Suspect]
     Active Substance: PEMBROLIZUMAB
     Indication: Breast cancer
     Dosage: 200MG ? 1/3 WEEKS.
     Route: 041
     Dates: start: 20250514, end: 20250514
  2. KEYTRUDA [Suspect]
     Active Substance: PEMBROLIZUMAB
     Indication: Breast cancer
     Dosage: 200MG ? 1/3 WEEKS.
     Route: 041
     Dates: start: 20250604, end: 20250604
  3. KEYTRUDA [Suspect]
     Active Substance: PEMBROLIZUMAB
     Indication: Breast cancer
     Dosage: 200MG ? 1/3 WEEKS.
     Route: 041
     Dates: start: 20250625, end: 20250625

REACTIONS (1)
  - Renal impairment [Unknown]
